FAERS Safety Report 7480591-7 (Version None)
Quarter: 2011Q2

REPORT INFORMATION
  Report Type: 
  Country: None (occurrence: None)
  Receive Date: 20110504
  Receipt Date: 20110428
  Transmission Date: 20111010
  Serious: Yes (Other)
  Sender: FDA-Public Use
  Company Number: WAES 1104USA03007

PATIENT
  Age: 43 Year
  Sex: Male

DRUGS (2)
  1. ISENTRESS [Suspect]
     Indication: HIV INFECTION
     Dosage: 400 MG/BID, PO
     Route: 048
     Dates: start: 20110211, end: 20110411
  2. TRUVADA [Concomitant]

REACTIONS (16)
  - BLOOD CREATINE PHOSPHOKINASE INCREASED [None]
  - PAIN IN EXTREMITY [None]
  - SENSATION OF HEAVINESS [None]
  - SWOLLEN TONGUE [None]
  - ALCOHOL WITHDRAWAL SYNDROME [None]
  - BLOOD BILIRUBIN INCREASED [None]
  - MUSCULAR WEAKNESS [None]
  - NECROSIS [None]
  - ASPARTATE AMINOTRANSFERASE INCREASED [None]
  - PROTHROMBIN TIME PROLONGED [None]
  - GRAND MAL CONVULSION [None]
  - HAEMATOMA [None]
  - ALANINE AMINOTRANSFERASE INCREASED [None]
  - TONGUE BITING [None]
  - LIVER INJURY [None]
  - MYALGIA [None]
